FAERS Safety Report 4828056-2 (Version None)
Quarter: 2005Q4

REPORT INFORMATION
  Report Type: 
  Country: None (occurrence: None)
  Receive Date: 20051110
  Receipt Date: 20051103
  Transmission Date: 20060501
  Serious: Yes (Other)
  Sender: FDA-Public Use
  Company Number: 200510707BNE

PATIENT
  Age: 50 Year
  Sex: Male

DRUGS (1)
  1. ASPIRIN [Suspect]
     Indication: CARDIOVASCULAR EVENT PROPHYLAXIS
     Dosage: ORAL
     Route: 048
     Dates: start: 20051001, end: 20051010

REACTIONS (4)
  - CIRCULATORY COLLAPSE [None]
  - FAECES DISCOLOURED [None]
  - HAEMATEMESIS [None]
  - HYPOTENSION [None]
